FAERS Safety Report 10351730 (Version 3)
Quarter: 2014Q3

REPORT INFORMATION
  Report Type: Report from Study
  Country: US (occurrence: US)
  Receive Date: 20140730
  Receipt Date: 20140903
  Transmission Date: 20150326
  Serious: Yes (Hospitalization, Other)
  Sender: FDA-Public Use
  Company Number: US-BAYER-2014-078574

PATIENT
  Age: 65 Year
  Sex: Male

DRUGS (3)
  1. STIVARGA [Suspect]
     Active Substance: REGORAFENIB
     Indication: COLON CANCER
     Dosage: 40 MG, QID
     Route: 048
     Dates: start: 20140501, end: 20140602
  2. STIVARGA [Suspect]
     Active Substance: REGORAFENIB
     Indication: COLON CANCER
     Dosage: 120 MG DAILY (3 TABLETS)
     Route: 048
     Dates: end: 201408
  3. STIVARGA [Suspect]
     Active Substance: REGORAFENIB
     Indication: COLON CANCER
     Dosage: 40 MG, TID
     Route: 048
     Dates: start: 20140617

REACTIONS (4)
  - Renal failure acute [None]
  - Diarrhoea [None]
  - Fluid intake reduced [Not Recovered/Not Resolved]
  - Aphagia [Not Recovered/Not Resolved]

NARRATIVE: CASE EVENT DATE: 20140508
